FAERS Safety Report 8632011 (Version 3)
Quarter: 2014Q2

REPORT INFORMATION
  Report Type: Report from Study
  Country: MX (occurrence: MX)
  Receive Date: 20120625
  Receipt Date: 20140502
  Transmission Date: 20141212
  Serious: Yes (Hospitalization, Other)
  Sender: FDA-Public Use
  Company Number: PHHY2012MX053231

PATIENT
  Age: 43 Year
  Sex: Female

DRUGS (6)
  1. FORADIL [Suspect]
     Indication: ASTHMA
     Dosage: 3 DF, THREE TAB DAILY
     Route: 055
     Dates: start: 201010, end: 2013
  2. MIFLONIDE [Suspect]
     Indication: ASTHMA
     Dosage: 2 CAPSULES, DAILY
     Route: 055
     Dates: start: 201103, end: 201403
  3. COMBIVENT [Concomitant]
     Indication: ASTHMA
     Dosage: 3 DF, THREE APPLICATIONS DAILY
     Dates: start: 201110
  4. COMBIVENT [Concomitant]
     Dosage: 3 DF, THREE APPLICATIONS DAILY
     Dates: start: 201204
  5. OMEPRAZOLE [Concomitant]
     Indication: GASTRITIS
     Dosage: 3 DF, THREE TAB DAILY
     Dates: start: 201002
  6. METICORTEN [Concomitant]
     Indication: GASTRITIS
     Dosage: 1 DF, QD
     Dates: start: 201205

REACTIONS (12)
  - Convulsion [Not Recovered/Not Resolved]
  - Loss of consciousness [Not Recovered/Not Resolved]
  - Faecal incontinence [Not Recovered/Not Resolved]
  - Depression [Not Recovered/Not Resolved]
  - Feeling of despair [Not Recovered/Not Resolved]
  - Nausea [Not Recovered/Not Resolved]
  - Asthma [Not Recovered/Not Resolved]
  - Agitation [Unknown]
  - Feeling abnormal [Unknown]
  - Fatigue [Recovered/Resolved]
  - Drug ineffective [Unknown]
  - Dysphonia [Recovered/Resolved]
